FAERS Safety Report 5530585-3 (Version None)
Quarter: 2007Q4

REPORT INFORMATION
  Report Type: 
  Country: None (occurrence: None)
  Receive Date: 20071130
  Receipt Date: 20070130
  Transmission Date: 20080405
  Serious: No
  Sender: FDA-Public Use
  Company Number: US-ASTRAZENECA-2006UW07705

PATIENT
  Age: 585 Month
  Sex: Male
  Weight: 84.5 kg

DRUGS (2)
  1. SEROQUEL [Suspect]
     Indication: PRURITUS
     Route: 048
     Dates: start: 19970101, end: 20040101
  2. SEROQUEL [Suspect]
     Indication: INSOMNIA
     Route: 048
     Dates: start: 19970101, end: 20040101

REACTIONS (1)
  - DIABETES MELLITUS [None]
